FAERS Safety Report 7681265-X (Version None)
Quarter: 2011Q3

REPORT INFORMATION
  Report Type: 
  Country: None (occurrence: None)
  Receive Date: 20110812
  Receipt Date: 20110804
  Transmission Date: 20111222
  Serious: Yes (Hospitalization, Other)
  Sender: FDA-Public Use
  Company Number: JP-BAYER-200813229BYL

PATIENT
  Age: 54 Year
  Sex: Male
  Weight: 61 kg

DRUGS (10)
  1. NEXAVAR [Suspect]
     Indication: RENAL CELL CARCINOMA
     Dosage: 800 MG (DAILY DOSE), , ORAL
     Route: 048
     Dates: start: 20080714, end: 20080714
  2. NEXAVAR [Suspect]
     Dosage: 400 MG (DAILY DOSE), , ORAL
     Route: 048
     Dates: start: 20090214, end: 20090216
  3. NEXAVAR [Suspect]
     Dosage: UNK
     Route: 048
     Dates: end: 20110701
  4. NEXAVAR [Suspect]
     Dosage: 400 MG (DAILY DOSE), , ORAL
     Route: 048
     Dates: start: 20080819, end: 20081110
  5. NEXAVAR [Suspect]
     Dosage: 400 MG (DAILY DOSE), , ORAL
     Route: 048
     Dates: start: 20081125, end: 20090127
  6. NEXAVAR [Suspect]
     Dosage: 400 MG (DAILY DOSE), , ORAL
     Route: 048
     Dates: start: 20090513, end: 20090615
  7. CORTRIL [Concomitant]
     Dosage: BEFORE 04-JUL-2008
     Route: 048
  8. NEUFAN [Concomitant]
     Dosage: BEFORE 04-JUL-2008
     Route: 048
  9. ALLOPURINOL [Concomitant]
     Dosage: BEFORE 04-JUL-2008
     Route: 048
  10. ASTROFEN [Concomitant]
     Dosage: BEFORE 04-JUL-2008
     Route: 048

REACTIONS (13)
  - LIPASE INCREASED [None]
  - VOMITING [None]
  - ABDOMINAL PAIN [None]
  - COUGH [None]
  - RETINAL DETACHMENT [None]
  - PALMAR-PLANTAR ERYTHRODYSAESTHESIA SYNDROME [None]
  - EPISTAXIS [None]
  - BLOOD AMYLASE INCREASED [None]
  - CONVULSION [None]
  - DECREASED APPETITE [None]
  - MALAISE [None]
  - DIARRHOEA [None]
  - HYPOPHOSPHATAEMIA [None]
